FAERS Safety Report 5368262-4 (Version None)
Quarter: 2007Q2

REPORT INFORMATION
  Report Type: 
  Country: None (occurrence: None)
  Receive Date: 20070619
  Receipt Date: 20070612
  Transmission Date: 20071010
  Serious: Yes (Hospitalization, Other)
  Sender: FDA-Public Use
  Company Number: 062-C5013-07030925

PATIENT
  Age: 79 Year
  Sex: Female
  Weight: 63 kg

DRUGS (3)
  1. CC-5013 (LENALIDOMIDE) (CAPSULES) [Suspect]
     Indication: MULTIPLE MYELOMA
     Dosage: SEE IMAGE
     Route: 048
     Dates: start: 20061018, end: 20061208
  2. CC-5013 (LENALIDOMIDE) (CAPSULES) [Suspect]
     Indication: MULTIPLE MYELOMA
     Dosage: SEE IMAGE
     Route: 048
     Dates: start: 20061213, end: 20070227
  3. DEXAMETHASONE TAB [Concomitant]

REACTIONS (9)
  - ANAEMIA [None]
  - ASCITES [None]
  - BLISTER [None]
  - GENERALISED OEDEMA [None]
  - IMMUNOSUPPRESSION [None]
  - OEDEMA PERIPHERAL [None]
  - PLATELET COUNT DECREASED [None]
  - VENTRICULAR EXTRASYSTOLES [None]
  - WHITE BLOOD CELL COUNT DECREASED [None]
